FAERS Safety Report 6795500-3 (Version None)
Quarter: 2010Q2

REPORT INFORMATION
  Report Type: 
  Country: None (occurrence: None)
  Receive Date: 20100625
  Receipt Date: 20100614
  Transmission Date: 20101027
  Serious: Yes (Hospitalization)
  Sender: FDA-Public Use
  Company Number: BR-GENZYME-RENA-1000749

PATIENT
  Sex: Male

DRUGS (1)
  1. RENAGEL [Suspect]
     Indication: HYPERPHOSPHATAEMIA
     Dosage: 1.6 G, TID
     Route: 048

REACTIONS (6)
  - CHEST PAIN [None]
  - HYPERPHOSPHATAEMIA [None]
  - INTENTIONAL OVERDOSE [None]
  - OESOPHAGEAL DILATATION [None]
  - OESOPHAGITIS [None]
  - SUICIDE ATTEMPT [None]
